FAERS Safety Report 14709629 (Version 2)
Quarter: 2018Q2

REPORT INFORMATION
  Report Type: Report from Study
  Country: IT (occurrence: IT)
  Receive Date: 20180403
  Receipt Date: 20180403
  Transmission Date: 20180711
  Serious: Yes (Other)
  Sender: FDA-Public Use
  Company Number: IT-PFIZER INC-2018129595

PATIENT
  Age: 71 Year
  Sex: Female

DRUGS (2)
  1. EUTIROX [Concomitant]
     Active Substance: LEVOTHYROXINE SODIUM
  2. XANAX [Suspect]
     Active Substance: ALPRAZOLAM
     Indication: DEPRESSION
     Dosage: 5 ML, UNK
     Route: 048
     Dates: start: 20180208, end: 20180208

REACTIONS (4)
  - Medication error [Recovered/Resolved with Sequelae]
  - Limb injury [Recovered/Resolved with Sequelae]
  - Sopor [Recovered/Resolved with Sequelae]
  - Bradykinesia [Recovered/Resolved with Sequelae]

NARRATIVE: CASE EVENT DATE: 20180208
